FAERS Safety Report 21229539 (Version 2)
Quarter: 2024Q3

REPORT INFORMATION
  Report Type: Spontaneous
  Country: IT (occurrence: IT)
  Receive Date: 20220818
  Receipt Date: 20240710
  Transmission Date: 20241016
  Serious: Yes (Life-Threatening, Hospitalization, Other)
  Sender: PIERRE FABRE MEDICAMENT
  Company Number: IT-MLMSERVICE-20210429-2859962-1

PATIENT
  Age: 10 Month
  Sex: Male

DRUGS (1)
  1. PROPRANOLOL HYDROCHLORIDE [Suspect]
     Active Substance: PROPRANOLOL HYDROCHLORIDE
     Indication: Infantile haemangioma
     Dosage: EVENING DOSE OF PROPRANOLOL. THE NEXT MORNING, THE MOTHER STILL GAVE HIM PROPRANOLOL WITHOUT FOOD
     Route: 065

REACTIONS (3)
  - Hypoglycaemic coma [Recovered/Resolved]
  - Loss of consciousness [Recovered/Resolved]
  - Seizure [Recovered/Resolved]
